FAERS Safety Report 5634834-2 (Version None)
Quarter: 2008Q1

REPORT INFORMATION
  Report Type: 
  Country: None (occurrence: None)
  Receive Date: 20080222
  Receipt Date: 20080220
  Transmission Date: 20080703
  Serious: Yes (Hospitalization)
  Sender: FDA-Public Use
  Company Number: FR-MERCK-0802FRA00072

PATIENT
  Age: 76 Year
  Sex: Male

DRUGS (11)
  1. INVANZ [Suspect]
     Indication: DIABETIC FOOT INFECTION
     Route: 041
     Dates: start: 20071207, end: 20080102
  2. LINEZOLID [Suspect]
     Indication: DIABETIC FOOT INFECTION
     Route: 048
     Dates: start: 20071207, end: 20080102
  3. REPAGLINIDE [Concomitant]
     Route: 048
  4. METFORMIN [Concomitant]
     Route: 048
  5. INSULIN GLARGINE [Concomitant]
     Route: 058
  6. CLOPIDOGREL BISULFATE [Concomitant]
     Route: 048
  7. DIGOXIN [Concomitant]
     Route: 048
  8. RAMIPRIL [Concomitant]
     Route: 048
  9. PAROXETINE [Concomitant]
     Route: 048
  10. HYDROXYZINE HYDROCHLORIDE [Concomitant]
     Route: 048
  11. DUTASTERIDE [Concomitant]
     Route: 048

REACTIONS (2)
  - ANAEMIA [None]
  - THROMBOCYTOPENIA [None]
